FAERS Safety Report 11985660 (Version 1)
Quarter: 2016Q1

REPORT INFORMATION
  Report Type: Spontaneous
  Country: US (occurrence: US)
  Receive Date: 20160201
  Receipt Date: 20160201
  Transmission Date: 20160526
  Serious: No
  Sender: FDA-Public Use
  Company Number: US-ASTRAZENECA-2016SE07592

PATIENT
  Age: 56 Day
  Sex: Male
  Weight: 4.6 kg

DRUGS (10)
  1. SIMETHICONE DROPS [Concomitant]
     Indication: FLATULENCE
  2. SODIUM CHLORIDE. [Concomitant]
     Active Substance: SODIUM CHLORIDE
  3. DIURIL [Concomitant]
     Active Substance: CHLOROTHIAZIDE
  4. ZANTAC [Concomitant]
     Active Substance: RANITIDINE HYDROCHLORIDE
  5. SYNAGIS [Suspect]
     Active Substance: PALIVIZUMAB
     Indication: RESPIRATORY SYNCYTIAL VIRUS TEST
     Route: 030
     Dates: start: 20151203
  6. PREVACID [Concomitant]
     Active Substance: LANSOPRAZOLE
  7. GLYCERIN SUPPOSITORIES [Concomitant]
  8. REGLAN [Concomitant]
     Active Substance: METOCLOPRAMIDE HYDROCHLORIDE
  9. CAPTOPRIL. [Concomitant]
     Active Substance: CAPTOPRIL
  10. MIRALAX [Concomitant]
     Active Substance: POLYETHYLENE GLYCOL 3350

REACTIONS (2)
  - Feeding intolerance [Unknown]
  - Rash [Unknown]

NARRATIVE: CASE EVENT DATE: 20151203
